FAERS Safety Report 6628659-9 (Version None)
Quarter: 2010Q1

REPORT INFORMATION
  Report Type: 
  Country: None (occurrence: None)
  Receive Date: 20100311
  Receipt Date: 20100301
  Transmission Date: 20100710
  Serious: Yes (Other)
  Sender: FDA-Public Use
  Company Number: US-PFIZER INC-2010028062

PATIENT
  Sex: Male
  Weight: 106.58 kg

DRUGS (5)
  1. XALATAN [Suspect]
     Indication: GLAUCOMA
     Dosage: 1 DROP IN RIGHT EYE, 1X/DAY
     Route: 047
  2. XALATAN [Suspect]
     Dosage: 1 DROP IN EACH EYE, 1X/DAY
     Route: 047
  3. TOPROL-XL [Concomitant]
     Indication: HYPERTENSION
     Dosage: UNK
  4. COMBIGAN [Concomitant]
     Dosage: UNK
  5. ECOTRIN [Concomitant]
     Dosage: UNK

REACTIONS (2)
  - INTRAOCULAR PRESSURE INCREASED [None]
  - OCULAR HYPERAEMIA [None]
